FAERS Safety Report 5483817-4 (Version None)
Quarter: 2007Q4

REPORT INFORMATION
  Report Type: 
  Country: None (occurrence: None)
  Receive Date: 20071012
  Receipt Date: 20071001
  Transmission Date: 20080405
  Serious: Yes (Hospitalization)
  Sender: FDA-Public Use
  Company Number: B0490825A

PATIENT
  Age: 76 Year
  Sex: Male

DRUGS (2)
  1. BECOTIDE 250 MCG [Suspect]
     Indication: EMPHYSEMA
     Route: 055
     Dates: start: 20070901, end: 20070901
  2. VENTOLIN [Concomitant]
     Indication: EMPHYSEMA
     Route: 055
     Dates: start: 20070901, end: 20070901

REACTIONS (3)
  - HYPERGLYCAEMIA [None]
  - VERTIGO [None]
  - VOMITING [None]
